FAERS Safety Report 7238752-8 (Version None)
Quarter: 2011Q1

REPORT INFORMATION
  Report Type: 
  Country: None (occurrence: None)
  Receive Date: 20110121
  Receipt Date: 20110114
  Transmission Date: 20110831
  Serious: Yes (Other)
  Sender: FDA-Public Use
  Company Number: US-JNJFOC-20101103144

PATIENT
  Sex: Female
  Weight: 63.5 kg

DRUGS (3)
  1. MORPHINE [Concomitant]
  2. PRISTIQ [Concomitant]
  3. NUCYNTA [Suspect]
     Indication: COMPLEX REGIONAL PAIN SYNDROME
     Route: 048

REACTIONS (1)
  - APHASIA [None]
